FAERS Safety Report 15695575 (Version 1)
Quarter: 2018Q4

REPORT INFORMATION
  Report Type: Spontaneous
  Country: DE (occurrence: DE)
  Receive Date: 20181206
  Receipt Date: 20181206
  Transmission Date: 20190205
  Serious: Yes (Other)
  Sender: FDA-Public Use
  Company Number: DE-ALEXION PHARMACEUTICALS INC-A201814431

PATIENT
  Age: 20 Month
  Sex: Female

DRUGS (3)
  1. SOLIRIS [Suspect]
     Active Substance: ECULIZUMAB
     Indication: AUTOIMMUNE HAEMOLYTIC ANAEMIA
     Dosage: UNK, TWICE WEEKLY
     Route: 065
  2. SOLIRIS [Suspect]
     Active Substance: ECULIZUMAB
     Indication: OFF LABEL USE
  3. DARATUMUMAB [Suspect]
     Active Substance: DARATUMUMAB
     Indication: AUTOIMMUNE HAEMOLYTIC ANAEMIA
     Dosage: 16 MG/KG, UNK
     Route: 065

REACTIONS (4)
  - B-lymphocyte count decreased [Recovering/Resolving]
  - Plasma cells decreased [Unknown]
  - Drug ineffective [Unknown]
  - Off label use [Unknown]
